FAERS Safety Report 9681889 (Version 1)
Quarter: 2013Q4

REPORT INFORMATION
  Report Type: Spontaneous
  Country: DE (occurrence: DE)
  Receive Date: 20131111
  Receipt Date: 20131111
  Transmission Date: 20140711
  Serious: Yes (Congenital Anomaly)
  Sender: FDA-Public Use
  Company Number: DE-MYLANLABS-2013S1024285

PATIENT
  Sex: Male
  Weight: 4.04 kg

DRUGS (3)
  1. PAROXETIN [Suspect]
     Route: 064
     Dates: start: 20090105, end: 20090415
  2. OLANZAPIN [Suspect]
     Route: 064
     Dates: start: 20081031, end: 20081218
  3. THYRONAJOD [Concomitant]
     Route: 064

REACTIONS (2)
  - Talipes [Recovering/Resolving]
  - Exposure during pregnancy [Recovered/Resolved]
